FAERS Safety Report 9804626 (Version 2)
Quarter: 2014Q1

REPORT INFORMATION
  Report Type: Spontaneous
  Country: US (occurrence: US)
  Receive Date: 20140108
  Receipt Date: 20140205
  Transmission Date: 20141002
  Serious: Yes (Death)
  Sender: FDA-Public Use
  Company Number: US-GLAXOSMITHKLINE-A1055871A

PATIENT
  Age: 31 Year
  Sex: Female

DRUGS (4)
  1. VOTRIENT [Suspect]
     Indication: UTERINE CANCER
     Dosage: 800MG PER DAY
     Route: 048
     Dates: start: 20120731
  2. NEULASTA [Concomitant]
  3. DOCUSATE [Concomitant]
  4. OXYCONTIN [Concomitant]

REACTIONS (1)
  - Sarcoma uterus [Fatal]
